FAERS Safety Report 18000091 (Version 2)
Quarter: 2021Q1

REPORT INFORMATION
  Report Type: Spontaneous
  Country: GB (occurrence: GB)
  Receive Date: 20200709
  Receipt Date: 20210203
  Transmission Date: 20210419
  Serious: Yes (Death, Other)
  Sender: FDA-Public Use
  Company Number: GB-PFIZER INC-2012085381

PATIENT
  Age: 4 Week
  Sex: Female

DRUGS (1)
  1. PROPOFOL. [Suspect]
     Active Substance: PROPOFOL
     Indication: SEDATION
     Dosage: 7.1?10.7 MG/KG/HOUR X 74.5 HOURS

REACTIONS (6)
  - Bradycardia neonatal [Fatal]
  - Metabolic acidosis [Unknown]
  - Off label use [Fatal]
  - Hyperlipidaemia [Unknown]
  - Cardiac arrest neonatal [Fatal]
  - Neonatal cardiac failure [Fatal]
